FAERS Safety Report 9746373 (Version 1)
Quarter: 2013Q4

REPORT INFORMATION
  Report Type: Spontaneous
  Country: IN (occurrence: None)
  Receive Date: 20131205
  Receipt Date: 20131205
  Transmission Date: 20140711
  Serious: Yes (Hospitalization, Other)
  Sender: FDA-Public Use
  Company Number: 2013-PEL-000008

PATIENT
  Age: 20 Year
  Sex: Female
  Weight: 20 kg

DRUGS (8)
  1. SEVOFLURANE [Suspect]
     Indication: ANAESTHESIA
     Dosage: INCREMENTAL CONCENTRATION OF SEVOFLURANE, RESPIRATORY
  2. ROCURONIUM (ROCURONIUM) [Concomitant]
  3. THIOPENTONE /00053401/ (THIOPENTAL) [Concomitant]
  4. OXYGEN (OXYGEN) [Concomitant]
  5. NITROUS OXIDE (NITROUS OXIDE) [Concomitant]
  6. FENTANYL (FENTANYL) [Concomitant]
  7. VECURONIUM (VECURONIUM) [Concomitant]
  8. MANNITOL 20% A.N.B (MANNITOL) [Concomitant]

REACTIONS (5)
  - Respiratory distress [None]
  - Oxygen saturation decreased [None]
  - Depressed level of consciousness [None]
  - Obstructive airways disorder [None]
  - Pulmonary function test decreased [None]
